FAERS Safety Report 7885088-8 (Version None)
Quarter: 2011Q4

REPORT INFORMATION
  Report Type: 
  Country: None (occurrence: None)
  Receive Date: 20111102
  Receipt Date: 20100907
  Transmission Date: 20120403
  Serious: No
  Sender: FDA-Public Use
  Company Number: US-BAYER-201032875NA

PATIENT
  Age: 81 Year
  Sex: Male

DRUGS (2)
  1. MULTI-VITAMINS [Concomitant]
  2. LEVITRA [Suspect]
     Indication: ERECTILE DYSFUNCTION
     Dosage: 20 MG, ONCE
     Dates: start: 20100906

REACTIONS (1)
  - ERECTILE DYSFUNCTION [None]
